FAERS Safety Report 7126979-5 (Version None)
Quarter: 2010Q4

REPORT INFORMATION
  Report Type: 
  Country: None (occurrence: None)
  Receive Date: 20101129
  Receipt Date: 20091228
  Transmission Date: 20110411
  Serious: No
  Sender: FDA-Public Use
  Company Number: US-PFIZER INC-2009315884

PATIENT
  Sex: Male
  Weight: 163 kg

DRUGS (3)
  1. VIAGRA [Suspect]
     Indication: ERECTILE DYSFUNCTION
     Dosage: 2000 MG A DAY
     Route: 048
     Dates: start: 20091228
  2. LIPITOR [Concomitant]
     Indication: CARDIAC DISORDER
     Dosage: 50 MG, 3X/DAY
     Route: 048
  3. OXYCONTIN [Concomitant]
     Indication: HIP ARTHROPLASTY
     Dosage: UNK
     Route: 048

REACTIONS (3)
  - HEART RATE INCREASED [None]
  - MEDICATION ERROR [None]
  - PENIS DISORDER [None]
